FAERS Safety Report 6812890-3 (Version None)
Quarter: 2010Q2

REPORT INFORMATION
  Report Type: 
  Country: None (occurrence: None)
  Receive Date: 20100628
  Receipt Date: 20100617
  Transmission Date: 20101027
  Serious: Yes (Life-Threatening)
  Sender: FDA-Public Use
  Company Number: 2010-0564

PATIENT
  Age: 74 Year
  Sex: Female

DRUGS (6)
  1. APOKYN [Suspect]
     Indication: PARKINSON'S DISEASE
     Dosage: (0.2 ML), SUBCUTANEOUS
     Route: 058
     Dates: start: 20091101
  2. CHEMOTHERAPHY (CHEMOTHERAPEUTICS NOS) [Concomitant]
  3. ATIVAN [Concomitant]
  4. COMTAN [Concomitant]
  5. SINEMET [Concomitant]
  6. MIRAPEX [Concomitant]

REACTIONS (1)
  - HAEMORRHAGE [None]
